FAERS Safety Report 14486048 (Version 1)
Quarter: 2018Q1

REPORT INFORMATION
  Report Type: Spontaneous
  Country: US (occurrence: US)
  Receive Date: 20180203
  Receipt Date: 20180203
  Transmission Date: 20180509
  Serious: Yes (Other)
  Sender: FDA-Public Use
  Company Number: None

PATIENT
  Sex: Female

DRUGS (7)
  1. LATANOPROST. [Concomitant]
     Active Substance: LATANOPROST
  2. LISINOPRIL. [Concomitant]
     Active Substance: LISINOPRIL
  3. STATINS PAK SUPPORT [Concomitant]
  4. ASPIRIN. [Concomitant]
     Active Substance: ASPIRIN
  5. CARVEDILOL. [Concomitant]
     Active Substance: CARVEDILOL
  6. NOVOLIN [Concomitant]
     Active Substance: INSULIN HUMAN
  7. HUMIRA [Suspect]
     Active Substance: ADALIMUMAB
     Indication: MULTIPLE SCLEROSIS
     Route: 058
     Dates: start: 20171018

REACTIONS (1)
  - Neoplasm malignant [None]
